FAERS Safety Report 10748953 (Version 2)
Quarter: 2015Q2

REPORT INFORMATION
  Report Type: Spontaneous
  Country: US (occurrence: US)
  Receive Date: 20150129
  Receipt Date: 20150414
  Transmission Date: 20150821
  Serious: Yes (Death, Hospitalization, Other)
  Sender: FDA-Public Use
  Company Number: US-MERCK-1501USA011739

PATIENT
  Sex: Male
  Weight: 68.27 kg

DRUGS (7)
  1. PRAVASTATIN [Concomitant]
     Active Substance: PRAVASTATIN\PRAVASTATIN SODIUM
     Dosage: UNK
     Dates: start: 20070827, end: 20100420
  2. GLYBURIDE (+) METFORMIN HYDROCHLORIDE [Concomitant]
     Indication: TYPE 2 DIABETES MELLITUS
     Dosage: UNK
     Dates: start: 20070605, end: 20081218
  3. DIGITEK [Concomitant]
     Active Substance: DIGOXIN
     Dosage: UNK
     Dates: start: 20070921, end: 20080304
  4. AVAPRO [Concomitant]
     Active Substance: IRBESARTAN
     Indication: HYPERTENSION
     Dosage: UNK
     Dates: start: 20070605, end: 20100201
  5. METOPROLOL SUCCINATE. [Concomitant]
     Active Substance: METOPROLOL SUCCINATE
     Indication: HYPERTENSION
     Dosage: UNK
     Dates: start: 20070902, end: 20080519
  6. JANUVIA [Suspect]
     Active Substance: SITAGLIPTIN PHOSPHATE
     Indication: TYPE 2 DIABETES MELLITUS
     Dosage: 100 MG, QD
     Route: 048
     Dates: start: 20070814, end: 2012
  7. WARFARIN [Concomitant]
     Active Substance: WARFARIN
     Dosage: UNK
     Dates: start: 20070921, end: 20080815

REACTIONS (27)
  - Lung operation [Unknown]
  - Organising pneumonia [Unknown]
  - Coronary artery bypass [Unknown]
  - Deep vein thrombosis [Recovering/Resolving]
  - Inguinal hernia repair [Unknown]
  - Cerebrovascular accident [Unknown]
  - Diabetes mellitus [Fatal]
  - Decreased appetite [Unknown]
  - Inflammation [Unknown]
  - Coronary arterial stent insertion [Unknown]
  - Dizziness [Unknown]
  - Hypotony of eye [Unknown]
  - Metastases to liver [Fatal]
  - Nausea [Unknown]
  - Coronary artery disease [Unknown]
  - Asthma [Unknown]
  - Cardiac disorder [Unknown]
  - Bronchitis chronic [Unknown]
  - Lichen planus [Recovered/Resolved]
  - Iron deficiency anaemia [Unknown]
  - Percutaneous coronary intervention [Unknown]
  - Thrombocytopenia [Unknown]
  - Testicular operation [Unknown]
  - Pancreatic carcinoma metastatic [Fatal]
  - Asthenia [Unknown]
  - Atrial fibrillation [Fatal]
  - Hypogonadism [Unknown]

NARRATIVE: CASE EVENT DATE: 20070921
